FAERS Safety Report 5926223-8 (Version None)
Quarter: 2008Q4

REPORT INFORMATION
  Report Type: 
  Country: None (occurrence: None)
  Receive Date: 20081017
  Receipt Date: 20081006
  Transmission Date: 20090506
  Serious: Yes (Other)
  Sender: FDA-Public Use
  Company Number: 2008AP002665

PATIENT
  Age: 61 Year
  Sex: Male

DRUGS (7)
  1. TERBINAFINE HCL [Suspect]
     Indication: ONYCHOMYCOSIS
     Dosage: 250 MG; QD PO
     Route: 048
     Dates: start: 20080620, end: 20080718
  2. BENDROFLUMETHAZIDE (BENDROFLUMETHIAZIDE) [Concomitant]
  3. LISINOPRIL [Concomitant]
  4. SIMVASTATIN [Concomitant]
  5. SOTALOL HCL [Concomitant]
  6. WARFARIN SODIUM [Concomitant]
  7. TALAMPICILLIN HYDROCHLORIDE (TALAMPICILLIN HYDROCHLORIDE) [Concomitant]

REACTIONS (2)
  - JOINT STIFFNESS [None]
  - JOINT SWELLING [None]
